FAERS Safety Report 18337010 (Version 2)
Quarter: 2020Q4

REPORT INFORMATION
  Report Type: Spontaneous
  Country: US (occurrence: US)
  Receive Date: 20201002
  Receipt Date: 20201110
  Transmission Date: 20210113
  Serious: Yes (Hospitalization, Other)
  Sender: FDA-Public Use
  Company Number: US-PFIZER INC-2020377430

PATIENT
  Age: 69 Year
  Sex: Male

DRUGS (2)
  1. RAPAMUNE [Suspect]
     Active Substance: SIROLIMUS
     Dosage: 0.5 MG (0.5 MG TABLET TAKE 1 TAB (0.5 MG) DAILY ON ALL DAYS EXCEPT NONE ON FRIDAYS)
  2. SIROLIMUS. [Suspect]
     Active Substance: SIROLIMUS
     Dosage: UNK

REACTIONS (21)
  - Fall [Unknown]
  - Leukaemia [Unknown]
  - Cerebral haemorrhage [Unknown]
  - Pneumonia [Unknown]
  - BK virus infection [Unknown]
  - Platelet count decreased [Unknown]
  - Chromaturia [Unknown]
  - Cytomegalovirus infection [Unknown]
  - Neutropenia [Unknown]
  - Asthenia [Unknown]
  - Gait inability [Unknown]
  - Urinary bladder haemorrhage [Unknown]
  - Pyrexia [Unknown]
  - Head injury [Unknown]
  - Immune system disorder [Unknown]
  - Coagulopathy [Unknown]
  - Pollakiuria [Unknown]
  - Illness [Unknown]
  - Neutrophil count abnormal [Unknown]
  - Insomnia [Unknown]
  - Blood urine [Unknown]

NARRATIVE: CASE EVENT DATE: 20191031
